FAERS Safety Report 5008072-0 (Version None)
Quarter: 2006Q1

REPORT INFORMATION
  Report Type: 
  Country: None (occurrence: None)
  Receive Date: 20060329
  Receipt Date: 20060124
  Transmission Date: 20060701
  Serious: Yes (Other)
  Sender: FDA-Public Use
  Company Number: A03200600445

PATIENT
  Sex: 0

DRUGS (1)
  1. AMBIEN [Suspect]
     Indication: AMNESIA
     Dosage: ORAL
     Route: 048

REACTIONS (2)
  - AMNESIA [None]
  - INTENTIONAL DRUG MISUSE [None]
